FAERS Safety Report 5582039-6 (Version None)
Quarter: 2008Q1

REPORT INFORMATION
  Report Type: 
  Country: None (occurrence: None)
  Receive Date: 20080104
  Receipt Date: 20071227
  Transmission Date: 20080703
  Serious: Yes (Hospitalization)
  Sender: FDA-Public Use
  Company Number: US-TEVA-152129USA

PATIENT
  Age: 62 Year
  Sex: Male

DRUGS (10)
  1. FLUOROURACIL [Suspect]
     Indication: METASTATIC GASTRIC CANCER
     Dosage: CYCLE 1, DAY 1-5 EVERY 28 DAYS
     Route: 042
     Dates: start: 20070111, end: 20070115
  2. CISPLATIN [Suspect]
     Indication: METASTATIC GASTRIC CANCER
     Dosage: CYCLE 1
     Route: 042
     Dates: start: 20070111, end: 20070111
  3. APREPITANT [Concomitant]
     Indication: PREMEDICATION
     Dosage: 125-80 MG
     Route: 048
     Dates: start: 20070111, end: 20070113
  4. LORAZEPAM [Concomitant]
     Indication: PREMEDICATION
     Route: 042
     Dates: start: 20070111, end: 20070111
  5. ONDANSETRON [Concomitant]
     Indication: PREMEDICATION
     Route: 042
     Dates: start: 20070111, end: 20070111
  6. PROCHLORPERAZINE EDISYLATE [Concomitant]
     Indication: NAUSEA
     Dosage: PRN
     Route: 048
     Dates: start: 20070111
  7. PROCHLORPERAZINE EDISYLATE [Concomitant]
     Indication: VOMITING
  8. HYDROCODONE BITARTRATE [Concomitant]
     Indication: PAIN
     Dosage: 5/500 MG PRN
     Route: 048
     Dates: start: 20070102
  9. ONDANSETRON [Concomitant]
     Indication: NAUSEA
     Dosage: PRN
     Route: 048
     Dates: start: 20070111
  10. ONDANSETRON [Concomitant]
     Indication: VOMITING

REACTIONS (3)
  - FEBRILE NEUTROPENIA [None]
  - LOBAR PNEUMONIA [None]
  - RENAL FAILURE [None]
